FAERS Safety Report 5049760-X (Version None)
Quarter: 2006Q3

REPORT INFORMATION
  Report Type: 
  Country: None (occurrence: None)
  Receive Date: 20060712
  Receipt Date: 20060704
  Transmission Date: 20061208
  Serious: Yes (Death)
  Sender: FDA-Public Use
  Company Number: FR-SANOFI-SYNTHELABO-A02200601776

PATIENT
  Age: 65 Year
  Sex: Female

DRUGS (4)
  1. ELOXATIN [Suspect]
     Indication: COLON CANCER
     Route: 042
     Dates: start: 19950101, end: 19950101
  2. CALCIUM FOLINATE [Concomitant]
     Indication: COLON CANCER
     Route: 042
     Dates: start: 19950101, end: 19950101
  3. FLUOROURACIL [Concomitant]
     Indication: COLON CANCER
     Route: 042
     Dates: start: 19950101, end: 19950101
  4. IRINOTECAN [Suspect]
     Indication: COLON CANCER
     Route: 042
     Dates: start: 19950101, end: 19950101

REACTIONS (1)
  - ACUTE PROMYELOCYTIC LEUKAEMIA [None]
